FAERS Safety Report 15639801 (Version 4)
Quarter: 2018Q4

REPORT INFORMATION
  Report Type: Spontaneous
  Country: ES (occurrence: ES)
  Receive Date: 20181120
  Receipt Date: 20181130
  Transmission Date: 20190205
  Serious: Yes (Other)
  Sender: FDA-Public Use
  Company Number: PHHY2018ES109845

PATIENT
  Age: 58 Year
  Sex: Female

DRUGS (5)
  1. INFLIXIMAB [Suspect]
     Active Substance: INFLIXIMAB
     Indication: DERMATOMYOSITIS
     Route: 065
  2. PREDNISONE. [Suspect]
     Active Substance: PREDNISONE
     Indication: DERMATOMYOSITIS
     Dosage: 5 MG, QD
     Route: 005
  3. PREDNISONE. [Suspect]
     Active Substance: PREDNISONE
     Dosage: 24.00 G, UNK
     Route: 065
  4. CICLOSPORIN [Suspect]
     Active Substance: CYCLOSPORINE
     Indication: DERMATOMYOSITIS
     Route: 065
  5. METHOTREXATE. [Suspect]
     Active Substance: METHOTREXATE
     Indication: DERMATOMYOSITIS
     Route: 065

REACTIONS (5)
  - Opportunistic infection [Unknown]
  - Cytomegalovirus infection [Recovering/Resolving]
  - Product use in unapproved indication [Unknown]
  - Gastrointestinal viral infection [Recovering/Resolving]
  - Off label use [Unknown]
